FAERS Safety Report 15878812 (Version 1)
Quarter: 2019Q1

REPORT INFORMATION
  Report Type: Spontaneous
  Country: FR (occurrence: FR)
  Receive Date: 20190128
  Receipt Date: 20190128
  Transmission Date: 20190417
  Serious: Yes (Hospitalization)
  Sender: FDA-Public Use
  Company Number: FR-BAYER-2019-015684

PATIENT
  Age: 58 Year
  Sex: Male

DRUGS (5)
  1. VOGALENE [Suspect]
     Active Substance: METOPIMAZINE
     Indication: TOXICITY TO VARIOUS AGENTS
     Dosage: 7.5 MG, UNK
     Route: 048
  2. DOLIPRANE [Suspect]
     Active Substance: ACETAMINOPHEN
     Indication: TOXICITY TO VARIOUS AGENTS
     Dosage: 10.5 G, UNK
     Route: 048
  3. ZOLPIDEM [Suspect]
     Active Substance: ZOLPIDEM\ZOLPIDEM TARTRATE
     Indication: TOXICITY TO VARIOUS AGENTS
     Dosage: 140 MG, UNK
     Route: 048
  4. XANAX [Suspect]
     Active Substance: ALPRAZOLAM
     Indication: TOXICITY TO VARIOUS AGENTS
     Dosage: 2.5 MG, UNK
     Route: 048
  5. ALEVE [Suspect]
     Active Substance: NAPROXEN SODIUM
     Indication: TOXICITY TO VARIOUS AGENTS
     Dosage: 7700 MG, UNK
     Route: 048

REACTIONS (3)
  - Analgesic drug level increased [Recovered/Resolved]
  - Agitation [Not Recovered/Not Resolved]
  - Altered state of consciousness [Recovered/Resolved]

NARRATIVE: CASE EVENT DATE: 20181124
